FAERS Safety Report 10108773 (Version 1)
Quarter: 2014Q2

REPORT INFORMATION
  Report Type: Spontaneous
  Country: ES (occurrence: ES)
  Receive Date: 20140425
  Receipt Date: 20140425
  Transmission Date: 20141212
  Serious: Yes (Other)
  Sender: FDA-Public Use
  Company Number: ES-AMGEN-ESPSP2014028934

PATIENT
  Age: 45 Year
  Sex: Male
  Weight: 57 kg

DRUGS (1)
  1. NEUPOGEN [Suspect]
     Indication: BONE MARROW FAILURE
     Dosage: 30 MILLION IU, UNK
     Route: 042
     Dates: start: 20140123, end: 20140123

REACTIONS (3)
  - Dizziness [Recovered/Resolved]
  - Hyperhidrosis [Recovered/Resolved]
  - Flushing [Recovered/Resolved]
